FAERS Safety Report 9779626 (Version 1)
Quarter: 2013Q4

REPORT INFORMATION
  Report Type: Spontaneous
  Country: US (occurrence: US)
  Receive Date: 20131223
  Receipt Date: 20131223
  Transmission Date: 20140711
  Serious: Yes (Hospitalization)
  Sender: FDA-Public Use
  Company Number: US-ELI_LILLY_AND_COMPANY-US201312007206

PATIENT
  Sex: Female

DRUGS (9)
  1. CYMBALTA [Suspect]
     Indication: DEPRESSION
     Dosage: 60 MG, QD
     Route: 065
     Dates: start: 2005
  2. CYMBALTA [Suspect]
     Indication: NEURALGIA
  3. ELMIRON [Concomitant]
     Indication: CYSTITIS INTERSTITIAL
     Dosage: 1 DF, TID
  4. NEXIUM [Concomitant]
  5. TOPIRAMATE [Concomitant]
  6. CRESTOR [Concomitant]
  7. RISPERDAL [Concomitant]
  8. SEROQUEL [Concomitant]
  9. PERCOCET [Concomitant]

REACTIONS (4)
  - Foot fracture [Unknown]
  - Tooth fracture [Unknown]
  - Mouth ulceration [Unknown]
  - Complex regional pain syndrome [Not Recovered/Not Resolved]
